FAERS Safety Report 5933579-9 (Version None)
Quarter: 2008Q4

REPORT INFORMATION
  Report Type: 
  Country: None (occurrence: None)
  Receive Date: 20081029
  Receipt Date: 20081020
  Transmission Date: 20090506
  Serious: Yes (Life-Threatening)
  Sender: FDA-Public Use
  Company Number: NZ-JNJFOC-20061101857

PATIENT
  Age: 54 Year
  Sex: Female

DRUGS (13)
  1. HALDOL [Suspect]
     Indication: PERSONALITY DISORDER
     Route: 030
  2. HALDOL [Suspect]
     Indication: BIPOLAR I DISORDER
     Dosage: TOOK FROM ^1990'S^
     Route: 030
  3. SEROQUEL [Concomitant]
     Dosage: TAKEN AT BEDTIME
  4. OMEPRAZOLE [Concomitant]
     Indication: DYSPEPSIA
  5. BENDROFLUAZIDE [Concomitant]
  6. BRUFEN [Concomitant]
     Indication: BACK PAIN
     Dosage: TAKEN 2-3 TIMES DAILY
  7. TRAMADOL HCL [Concomitant]
     Indication: PAIN
     Dosage: 1-2 TABLETS AS NEEDED
  8. ORPHENADRINE CITRATE [Concomitant]
  9. ANTINAUS [Concomitant]
     Indication: NAUSEA
     Dosage: 4 TIMES DAILY AS NEEDED
  10. CHLORPROMAZINE [Concomitant]
     Indication: ANXIETY
     Dosage: 25-50 MG DAILY
  11. BETALOC [Concomitant]
  12. ACCUPRIL [Concomitant]
     Route: 065
  13. IMOVANE [Concomitant]
     Route: 065

REACTIONS (17)
  - ANXIETY [None]
  - DEPRESSION [None]
  - DRY MOUTH [None]
  - FATIGUE [None]
  - HALLUCINATION [None]
  - HEADACHE [None]
  - HYPERPROLACTINAEMIA [None]
  - HYPERTENSION [None]
  - JOINT STIFFNESS [None]
  - KIDNEY RUPTURE [None]
  - LETHARGY [None]
  - MUSCULOSKELETAL STIFFNESS [None]
  - ORTHOSTATIC HYPOTENSION [None]
  - SOMNOLENCE [None]
  - URINARY RETENTION [None]
  - VISION BLURRED [None]
  - WEIGHT INCREASED [None]
